FAERS Safety Report 5800494-0 (Version None)
Quarter: 2008Q3

REPORT INFORMATION
  Report Type: 
  Country: None (occurrence: None)
  Receive Date: 20080703
  Receipt Date: 20080702
  Transmission Date: 20090109
  Serious: Yes (Hospitalization)
  Sender: FDA-Public Use
  Company Number: B0518011A

PATIENT
  Age: 81 Year
  Sex: Male

DRUGS (2)
  1. SEREVENT [Suspect]
     Indication: CHRONIC OBSTRUCTIVE PULMONARY DISEASE
     Dosage: 50MCG TWICE PER DAY
     Route: 055
     Dates: start: 20070808, end: 20070906
  2. MUCOSOLVAN [Concomitant]
     Indication: CHRONIC OBSTRUCTIVE PULMONARY DISEASE
     Route: 048
     Dates: start: 20061209, end: 20070906

REACTIONS (4)
  - CARDIAC FAILURE [None]
  - CHEST DISCOMFORT [None]
  - HYPOXIA [None]
  - PNEUMONIA [None]
